FAERS Safety Report 14901823 (Version 11)
Quarter: 2019Q1

REPORT INFORMATION
  Report Type: Spontaneous
  Country: CA (occurrence: CA)
  Receive Date: 20180516
  Receipt Date: 20190311
  Transmission Date: 20190417
  Serious: Yes (Hospitalization)
  Sender: FDA-Public Use
  Company Number: CA-CELLTRION INC.-2018CA019531

PATIENT

DRUGS (20)
  1. INFLECTRA [Suspect]
     Active Substance: INFLIXIMAB-DYYB
     Dosage: 700 MG, EVERY 2,6 WEEKS THEN EVERY 8 WEEKS
     Route: 042
     Dates: start: 20180409
  2. INFLECTRA [Suspect]
     Active Substance: INFLIXIMAB-DYYB
     Dosage: 10 MG/KG, (EVERY 4WEEKS)
     Route: 042
     Dates: start: 20181121
  3. CORTISONE [Concomitant]
     Active Substance: CORTISONE\HYDROCORTISONE
     Dosage: UNK
     Route: 048
  4. VANCOMYCIN [Concomitant]
     Active Substance: VANCOMYCIN
     Dosage: UNK
  5. INFLECTRA [Suspect]
     Active Substance: INFLIXIMAB-DYYB
     Dosage: 700 MG, EVERY 2,6 WEEKS THEN EVERY 8 WEEKS
     Route: 042
     Dates: start: 20180409
  6. INFLECTRA [Suspect]
     Active Substance: INFLIXIMAB-DYYB
     Dosage: 700 MG, EVERY 2,6 WEEKS THEN EVERY 8 WEEKS
     Route: 042
     Dates: start: 20181026
  7. CALCIUM [Concomitant]
     Active Substance: CALCIUM
     Dosage: UNK
  8. SYNTHROID [Concomitant]
     Active Substance: LEVOTHYROXINE SODIUM
     Dosage: UNK
  9. INFLECTRA [Suspect]
     Active Substance: INFLIXIMAB-DYYB
     Dosage: 700 MG, EVERY 2,6 WEEKS THEN EVERY 8 WEEKS
     Route: 042
     Dates: start: 20180828
  10. INFLECTRA [Suspect]
     Active Substance: INFLIXIMAB-DYYB
     Dosage: 10 MG/KG, (EVERY 4WEEKS FOR 3 MONTHS THEN EVERY 6 WEEKS)
     Route: 042
     Dates: start: 20190225
  11. ELIQUIS [Concomitant]
     Active Substance: APIXABAN
     Dosage: UNK
  12. VENLAFAXINE [Concomitant]
     Active Substance: VENLAFAXINE HYDROCHLORIDE
     Dosage: UNK
  13. INFLECTRA [Suspect]
     Active Substance: INFLIXIMAB-DYYB
     Dosage: 700 MG, EVERY 2,6 WEEKS THEN EVERY 8 WEEKS
     Route: 042
     Dates: start: 20180703
  14. INFLECTRA [Suspect]
     Active Substance: INFLIXIMAB-DYYB
     Indication: CROHN^S DISEASE
     Dosage: 700 MG, EVERY 2,6 WEEKS THEN EVERY 8 WEEKS
     Route: 042
     Dates: start: 20180326, end: 20181026
  15. INFLECTRA [Suspect]
     Active Substance: INFLIXIMAB-DYYB
     Dosage: 700 MG, EVERY 2,6 WEEKS THEN EVERY 8 WEEKS
     Route: 042
     Dates: start: 20180409
  16. SOLU-CORTEF [Concomitant]
     Active Substance: HYDROCORTISONE SODIUM SUCCINATE
     Dosage: UNK
     Route: 042
     Dates: start: 20180323
  17. INFLECTRA [Suspect]
     Active Substance: INFLIXIMAB-DYYB
     Dosage: 700 MG, EVERY 2,6 WEEKS THEN EVERY 8 WEEKS
     Route: 042
     Dates: start: 20180507
  18. INFLECTRA [Suspect]
     Active Substance: INFLIXIMAB-DYYB
     Dosage: 10 MG/KG, (EVERY 4WEEKS)
     Route: 042
     Dates: start: 20190114
  19. INFLECTRA [Suspect]
     Active Substance: INFLIXIMAB-DYYB
     Dosage: 10 MG/KG, (EVERY 4WEEKS)
     Route: 042
     Dates: start: 20181218
  20. RESTORIL [Concomitant]
     Active Substance: TEMAZEPAM
     Dosage: UNK

REACTIONS (12)
  - Alopecia [Not Recovered/Not Resolved]
  - Blood pressure fluctuation [Unknown]
  - Weight decreased [Unknown]
  - Abdominal pain [Not Recovered/Not Resolved]
  - Fatigue [Unknown]
  - Flatulence [Not Recovered/Not Resolved]
  - Decreased appetite [Unknown]
  - Product use issue [Unknown]
  - Phlebitis [Unknown]
  - Nausea [Unknown]
  - Pruritus [Not Recovered/Not Resolved]
  - Drug level below therapeutic [Unknown]

NARRATIVE: CASE EVENT DATE: 20180326
